FAERS Safety Report 17053509 (Version 1)
Quarter: 2019Q4

REPORT INFORMATION
  Report Type: Spontaneous
  Country: US (occurrence: US)
  Receive Date: 20191120
  Receipt Date: 20191120
  Transmission Date: 20200122
  Serious: Yes (Hospitalization, Other)
  Sender: FDA-Public Use
  Company Number: US-HIKMA PHARMACEUTICALS USA INC.-US-H14001-19-49858

PATIENT
  Age: 49 Year
  Sex: Male

DRUGS (2)
  1. PREDNISONE. [Concomitant]
     Active Substance: PREDNISONE
     Indication: MYASTHENIA GRAVIS
     Route: 065
  2. AZATHIOPRINE. [Suspect]
     Active Substance: AZATHIOPRINE
     Indication: MYASTHENIA GRAVIS
     Route: 065

REACTIONS (6)
  - Liver function test increased [Recovered/Resolved]
  - Acute kidney injury [Recovered/Resolved]
  - Drug hypersensitivity [Recovered/Resolved]
  - Lactic acidosis [Recovered/Resolved]
  - Leukocytosis [Recovered/Resolved]
  - Nephritis [Recovered/Resolved]
